FAERS Safety Report 25911888 (Version 1)
Quarter: 2025Q4

REPORT INFORMATION
  Report Type: Spontaneous
  Country: CA (occurrence: CA)
  Receive Date: 20251013
  Receipt Date: 20251013
  Transmission Date: 20260117
  Serious: Yes (Other)
  Sender: ROCHE
  Company Number: CA-ROCHE-10000406212

PATIENT
  Age: 77 Year
  Sex: Female

DRUGS (2)
  1. RITUXIMAB [Suspect]
     Active Substance: RITUXIMAB
     Indication: Rheumatoid arthritis
     Route: 042
  2. METHYLPREDNISOLONE [Concomitant]
     Active Substance: METHYLPREDNISOLONE
     Route: 042

REACTIONS (5)
  - Blood pressure increased [Recovered/Resolved]
  - Ear pruritus [Recovered/Resolved]
  - Flushing [Recovered/Resolved]
  - Illness [Recovered/Resolved]
  - Urticaria [Recovered/Resolved]
